FAERS Safety Report 7907425-8 (Version None)
Quarter: 2011Q4

REPORT INFORMATION
  Report Type: 
  Country: None (occurrence: None)
  Receive Date: 20111110
  Receipt Date: 20111107
  Transmission Date: 20120403
  Serious: Yes (Hospitalization)
  Sender: FDA-Public Use
  Company Number: DE-ABBOTT-11P-062-0872200-00

PATIENT
  Sex: Male

DRUGS (2)
  1. HUMIRA [Suspect]
     Indication: CROHN'S DISEASE
     Route: 058
     Dates: start: 20081010
  2. ASTRONAUTIC DIET [Concomitant]
     Indication: CROHN'S DISEASE
     Dosage: UNKNOWN

REACTIONS (1)
  - HOSPITALISATION [None]
